FAERS Safety Report 23004257 (Version 2)
Quarter: 2023Q4

REPORT INFORMATION
  Report Type: Spontaneous
  Country: FR (occurrence: FR)
  Receive Date: 20230928
  Receipt Date: 20231103
  Transmission Date: 20240109
  Serious: Yes (Other)
  Sender: FDA-Public Use
  Company Number: FR-SANDOZ-SDZ2023FR032827

PATIENT

DRUGS (2)
  1. CRYSVITA [Suspect]
     Active Substance: BUROSUMAB-TWZA
     Indication: Product used for unknown indication
     Dosage: 40 MG, 1X/2 WEEKS (1 INJECTION EVERY 14 DAYS)
     Route: 065
  2. OMNITROPE [Suspect]
     Active Substance: SOMATROPIN
     Indication: Hypophosphataemic osteomalacia
     Dosage: 1 MG (6 DAYS OUT OF 7)
     Route: 065
     Dates: start: 202205

REACTIONS (3)
  - Idiopathic intracranial hypertension [Unknown]
  - Craniosynostosis [Unknown]
  - Off label use [Unknown]
